FAERS Safety Report 7133115-8 (Version None)
Quarter: 2010Q4

REPORT INFORMATION
  Report Type: 
  Country: None (occurrence: None)
  Receive Date: 20101202
  Receipt Date: 20101125
  Transmission Date: 20110411
  Serious: Yes (Hospitalization)
  Sender: FDA-Public Use
  Company Number: CHNY2010GB00515

PATIENT
  Age: 21 Year
  Sex: Male

DRUGS (1)
  1. ACETAMINOPHEN [Suspect]
     Dosage: OVERDOSE
     Route: 048

REACTIONS (1)
  - OVERDOSE [None]
